FAERS Safety Report 9832198 (Version 1)
Quarter: 2014Q1

REPORT INFORMATION
  Report Type: Spontaneous
  Country: US (occurrence: US)
  Receive Date: 20140121
  Receipt Date: 20140121
  Transmission Date: 20141002
  Serious: Yes (Hospitalization, Other)
  Sender: FDA-Public Use
  Company Number: US-PFIZER INC-2014011779

PATIENT
  Age: 65 Year
  Sex: Female
  Weight: 87.98 kg

DRUGS (5)
  1. AZITHROMYCIN [Suspect]
     Indication: NASOPHARYNGITIS
     Dosage: UNK
     Dates: start: 201211
  2. AZITHROMYCIN [Suspect]
     Indication: OROPHARYNGEAL PAIN
  3. AZITHROMYCIN [Suspect]
     Indication: EAR DISORDER
  4. WARFARIN [Suspect]
     Indication: PULMONARY THROMBOSIS
     Dosage: 7 MG, DAILY
     Dates: start: 1999
  5. METFORMIN [Concomitant]
     Dosage: UNK, DAILY

REACTIONS (6)
  - Pericardial haemorrhage [Unknown]
  - Pulmonary haemorrhage [Unknown]
  - Pleurisy [Unknown]
  - International normalised ratio increased [Recovering/Resolving]
  - Dyspnoea [Unknown]
  - Gait disturbance [Unknown]
